FAERS Safety Report 8329197-8 (Version None)
Quarter: 2012Q2

REPORT INFORMATION
  Report Type: 
  Country: None (occurrence: None)
  Receive Date: 20120502
  Receipt Date: 20111027
  Transmission Date: 20120825
  Serious: No
  Sender: FDA-Public Use
  Company Number: US-ASTRAZENECA-2011SE65136

PATIENT
  Age: 55 Year
  Sex: Female

DRUGS (3)
  1. FASLODEX [Suspect]
     Route: 030
  2. SYMBOLTA [Concomitant]
  3. FASLODEX [Suspect]
     Indication: BREAST CANCER
     Route: 030
     Dates: start: 20060101

REACTIONS (4)
  - DEPRESSION [None]
  - FATIGUE [None]
  - URINARY RETENTION [None]
  - BACK PAIN [None]
